FAERS Safety Report 18191059 (Version 1)
Quarter: 2020Q3

REPORT INFORMATION
  Report Type: Spontaneous
  Country: US (occurrence: US)
  Receive Date: 20200824
  Receipt Date: 20200824
  Transmission Date: 20201103
  Serious: No
  Sender: FDA-Public Use
  Company Number: US-ROCHE-2564759

PATIENT
  Sex: Male

DRUGS (1)
  1. ALECENSA [Suspect]
     Active Substance: ALECTINIB HYDROCHLORIDE
     Indication: LUNG NEOPLASM MALIGNANT
     Route: 048
     Dates: start: 20200204

REACTIONS (12)
  - Pruritus [Unknown]
  - Dizziness [Unknown]
  - Petechiae [Unknown]
  - Hypersomnia [Unknown]
  - Haemorrhagic diathesis [Unknown]
  - Fatigue [Unknown]
  - Peripheral swelling [Unknown]
  - Myalgia [Unknown]
  - Abdominal pain [Unknown]
  - Increased tendency to bruise [Unknown]
  - Asthenia [Unknown]
  - Tenderness [Unknown]
